FAERS Safety Report 8458241-2 (Version None)
Quarter: 2012Q2

REPORT INFORMATION
  Report Type: 
  Country: None (occurrence: None)
  Receive Date: 20120323
  Receipt Date: 20111025
  Transmission Date: 20120825
  Serious: Yes (Hospitalization)
  Sender: FDA-Public Use
  Company Number: 163-21880-11102910

PATIENT
  Age: 80 Year
  Sex: Male

DRUGS (6)
  1. LENALIDOMIDE [Suspect]
     Indication: MULTIPLE MYELOMA
     Dosage: 25 MG, X 21 CAPS, PO
     Route: 048
     Dates: start: 20110512
  2. METOPROLOL TARTRATE [Concomitant]
  3. BENAZEPRIL HCL (BENAZEPRIL HYDROCHLORIDE)(UNKNOWN) [Concomitant]
  4. LIPITOR [Concomitant]
  5. CARBIDOPA - LEVODOPA (SINEMET) (UNKNOWN) [Concomitant]
  6. AMLODIPINE [Concomitant]

REACTIONS (1)
  - THROMBOSIS [None]
